FAERS Safety Report 5875979-1 (Version None)
Quarter: 2008Q3

REPORT INFORMATION
  Report Type: 
  Country: None (occurrence: None)
  Receive Date: 20080908
  Receipt Date: 20080908
  Transmission Date: 20090109
  Serious: Yes (Life-Threatening, Hospitalization)
  Sender: FDA-Public Use
  Company Number: None

PATIENT
  Age: 69 Year
  Sex: Male

DRUGS (6)
  1. WARFARIN SODIUM [Suspect]
     Indication: ATRIAL FIBRILLATION
     Dosage: PO
     Route: 048
  2. LIPITOR [Concomitant]
  3. ZERTIA [Concomitant]
  4. DIOAN [Concomitant]
  5. COREG [Concomitant]
  6. ASPIRIN [Concomitant]

REACTIONS (1)
  - SUBDURAL HAEMATOMA [None]
